FAERS Safety Report 6135874-X (Version None)
Quarter: 2009Q1

REPORT INFORMATION
  Report Type: 
  Country: None (occurrence: None)
  Receive Date: 20090327
  Receipt Date: 20090324
  Transmission Date: 20090719
  Serious: Yes (Other)
  Sender: FDA-Public Use
  Company Number: US-MERCK-0903USA04616

PATIENT
  Age: 61 Year
  Sex: Female
  Weight: 72 kg

DRUGS (7)
  1. FOSAMAX [Suspect]
     Indication: OSTEOPOROSIS
     Route: 048
  2. BONIVA [Suspect]
     Indication: OSTEOPOROSIS
     Route: 048
     Dates: start: 20080101, end: 20090309
  3. NEXIUM [Concomitant]
     Route: 065
  4. DYRENIUM [Concomitant]
     Route: 065
  5. DIOVAN [Concomitant]
     Route: 065
  6. SYNTHROID [Concomitant]
     Route: 065
  7. NORVASC [Concomitant]
     Route: 065

REACTIONS (2)
  - HUMERUS FRACTURE [None]
  - OSTEONECROSIS [None]
